FAERS Safety Report 8969230 (Version 1)
Quarter: 2012Q4

REPORT INFORMATION
  Report Type: 
  Country: US (occurrence: US)
  Receive Date: 20121218
  Receipt Date: 20121218
  Transmission Date: 20130627
  Serious: Yes (Other)
  Sender: FDA-Public Use
  Company Number: US-BRISTOL-MYERS SQUIBB COMPANY-16320343

PATIENT
  Sex: Male

DRUGS (1)
  1. ABILIFY [Suspect]
     Indication: AFFECTIVE DISORDER
     Dosage: dose was increased up to 15mg
7.5 in the morning and 7.5 at night
     Dates: start: 2008

REACTIONS (3)
  - Suicide attempt [Unknown]
  - Muscle spasms [Not Recovered/Not Resolved]
  - Tardive dyskinesia [Not Recovered/Not Resolved]
